FAERS Safety Report 12160117 (Version 2)
Quarter: 2016Q1

REPORT INFORMATION
  Report Type: Report from Study
  Country: GE (occurrence: GE)
  Receive Date: 20160308
  Receipt Date: 20160321
  Transmission Date: 20160526
  Serious: Yes (Death, Other)
  Sender: FDA-Public Use
  Company Number: GE-GILEAD-2016-0200856

PATIENT
  Age: 51 Year
  Sex: Male

DRUGS (2)
  1. SOFOSBUVIR [Suspect]
     Active Substance: SOFOSBUVIR
     Indication: HEPATITIS C
     Dosage: UNK UNKNOWN, UNK
     Route: 065
     Dates: start: 20150825
  2. RIBAVIRIN. [Concomitant]
     Active Substance: RIBAVIRIN
     Indication: HEPATITIS C
     Dosage: UNK UNKNOWN, UNK
     Route: 065
     Dates: start: 20150825

REACTIONS (3)
  - Encephalopathy [Fatal]
  - Death [Fatal]
  - Ascites [Fatal]

NARRATIVE: CASE EVENT DATE: 20160119
